FAERS Safety Report 18456578 (Version 1)
Quarter: 2020Q4

REPORT INFORMATION
  Report Type: Spontaneous
  Country: US (occurrence: US)
  Receive Date: 20201103
  Receipt Date: 20201103
  Transmission Date: 20210114
  Serious: Yes (Hospitalization)
  Sender: FDA-Public Use
  Company Number: US-STRIDES ARCOLAB LIMITED-2020SP013054

PATIENT
  Age: 60 Year
  Sex: Female

DRUGS (15)
  1. EPINEPHRINE. [Concomitant]
     Active Substance: EPINEPHRINE
     Indication: RESPIRATORY DISTRESS
  2. DIPHENHYDRAMINE. [Concomitant]
     Active Substance: DIPHENHYDRAMINE
     Indication: PRURITUS
     Dosage: 25 MILLIGRAM (DIPHENHYDRAMINE)
     Route: 065
  3. EPINEPHRINE. [Concomitant]
     Active Substance: EPINEPHRINE
     Indication: ANAPHYLACTIC REACTION
  4. EPINEPHRINE. [Concomitant]
     Active Substance: EPINEPHRINE
     Indication: NAUSEA
  5. DIPHENHYDRAMINE. [Concomitant]
     Active Substance: DIPHENHYDRAMINE
     Indication: RESPIRATORY DISTRESS
  6. PREDNISOLONE. [Suspect]
     Active Substance: PREDNISOLONE
     Indication: CHRONIC OBSTRUCTIVE PULMONARY DISEASE
     Dosage: 1 MILLIGRAM
     Route: 065
  7. DIPHENHYDRAMINE. [Concomitant]
     Active Substance: DIPHENHYDRAMINE
     Indication: ANAPHYLACTIC REACTION
  8. SOLU-MEDROL [Suspect]
     Active Substance: METHYLPREDNISOLONE SODIUM SUCCINATE
     Indication: CHRONIC OBSTRUCTIVE PULMONARY DISEASE
     Dosage: 40 MILLIGRAM, SINGLE
     Route: 042
  9. EPINEPHRINE. [Concomitant]
     Active Substance: EPINEPHRINE
     Indication: VOMITING
  10. DIPHENHYDRAMINE. [Concomitant]
     Active Substance: DIPHENHYDRAMINE
     Indication: HOT FLUSH
     Dosage: 50 MILLIGRAM (BENADRYL)
     Route: 042
  11. DIPHENHYDRAMINE. [Concomitant]
     Active Substance: DIPHENHYDRAMINE
     Indication: NAUSEA
  12. EPINEPHRINE. [Concomitant]
     Active Substance: EPINEPHRINE
     Indication: HOT FLUSH
     Dosage: 0.3 MILLIGRAM
     Route: 030
  13. EPINEPHRINE. [Concomitant]
     Active Substance: EPINEPHRINE
     Indication: PRURITUS
     Dosage: 0.5 MILLIGRAM
     Route: 030
  14. DIPHENHYDRAMINE. [Concomitant]
     Active Substance: DIPHENHYDRAMINE
     Indication: VOMITING
  15. PREDNISOLONE. [Suspect]
     Active Substance: PREDNISOLONE
     Dosage: 10 MILLIGRAM
     Route: 065

REACTIONS (4)
  - Vomiting [Unknown]
  - Pruritus [Unknown]
  - Nausea [Unknown]
  - Anaphylactic reaction [Unknown]
